FAERS Safety Report 4283365-3 (Version None)
Quarter: 2004Q1

REPORT INFORMATION
  Report Type: 
  Country: None (occurrence: None)
  Receive Date: 20040202
  Receipt Date: 20031031
  Transmission Date: 20041129
  Serious: Yes (Hospitalization)
  Sender: FDA-Public Use
  Company Number: PHHO2003MY14270

PATIENT
  Age: 29 Year
  Sex: Female
  Weight: 54 kg

DRUGS (3)
  1. ZELMAC [Suspect]
     Indication: IRRITABLE BOWEL SYNDROME
     Dosage: 6 MG, BID
     Route: 048
     Dates: start: 20030707
  2. RANITIDINE [Concomitant]
  3. FELDENE [Concomitant]

REACTIONS (5)
  - COLITIS [None]
  - FOOD POISONING [None]
  - GASTROENTERITIS [None]
  - HAEMATOCHEZIA [None]
  - PYREXIA [None]
